FAERS Safety Report 24190427 (Version 3)
Quarter: 2024Q3

REPORT INFORMATION
  Report Type: Spontaneous
  Country: NO (occurrence: NO)
  Receive Date: 20240808
  Receipt Date: 20240905
  Transmission Date: 20241017
  Serious: Yes (Hospitalization)
  Sender: VERTEX
  Company Number: NO-VERTEX PHARMACEUTICALS-2024-012772

PATIENT
  Age: 5 Year
  Sex: Female

DRUGS (2)
  1. ELEXACAFTOR\IVACAFTOR\TEZACAFTOR [Suspect]
     Active Substance: ELEXACAFTOR\IVACAFTOR\TEZACAFTOR
     Indication: Cystic fibrosis
     Dosage: 37.5 IVACAFTOR/ 25 TEZACAFTOR/ 50 ELEXACAFTOR
     Route: 048
     Dates: start: 20240708, end: 20240721
  2. KALYDECO [Suspect]
     Active Substance: IVACAFTOR
     Indication: Cystic fibrosis
     Dosage: 75 MG, 1 TABLET IN EVENING
     Route: 048
     Dates: start: 20240708, end: 20240721

REACTIONS (4)
  - Erythema multiforme [Recovered/Resolved]
  - Joint swelling [Unknown]
  - Human rhinovirus test positive [Recovered/Resolved]
  - Streptococcus test positive [Unknown]

NARRATIVE: CASE EVENT DATE: 20240701
